FAERS Safety Report 15903355 (Version 2)
Quarter: 2019Q1

REPORT INFORMATION
  Report Type: Report from Study
  Country: CO (occurrence: CO)
  Receive Date: 20190202
  Receipt Date: 20190212
  Transmission Date: 20190417
  Serious: Yes (Death, Hospitalization)
  Sender: FDA-Public Use
  Company Number: PHHY2019CO023678

PATIENT
  Age: 72 Year
  Sex: Female

DRUGS (1)
  1. ENTRESTO [Suspect]
     Active Substance: SACUBITRIL\VALSARTAN
     Indication: CARDIAC FAILURE
     Dosage: 1 DF (50 MG), Q12H
     Route: 048
     Dates: start: 20180127

REACTIONS (3)
  - Hypotension [Unknown]
  - Dysuria [Unknown]
  - Death [Fatal]

NARRATIVE: CASE EVENT DATE: 20190123
